FAERS Safety Report 9924412 (Version 2)
Quarter: 2014Q1

REPORT INFORMATION
  Report Type: Spontaneous
  Country: DE (occurrence: DE)
  Receive Date: 20140226
  Receipt Date: 20140317
  Transmission Date: 20141002
  Serious: Yes (Other)
  Sender: FDA-Public Use
  Company Number: DE-ELI_LILLY_AND_COMPANY-DE201402006099

PATIENT
  Age: 18 Year
  Sex: Female

DRUGS (6)
  1. HUMINSULIN NPH [Suspect]
     Indication: TYPE 1 DIABETES MELLITUS
     Dosage: 15 IU, EACH EVENING
     Route: 058
     Dates: start: 2010
  2. BERLINSULIN H NORMAL [Concomitant]
     Indication: TYPE 1 DIABETES MELLITUS
     Dosage: 1.75 IU, EACH MORNING
     Route: 065
     Dates: start: 2010
  3. BERLINSULIN H NORMAL [Concomitant]
     Dosage: 1.5 IU, QD
     Route: 065
  4. BERLINSULIN H NORMAL [Concomitant]
     Dosage: 1.75 IU, EACH EVENING
     Route: 065
  5. ALCOHOL [Concomitant]
  6. GANFORT [Concomitant]
     Indication: CATARACT
     Dosage: UNK
     Dates: start: 2013

REACTIONS (7)
  - Blood glucose increased [Recovered/Resolved]
  - Confusional state [Recovered/Resolved]
  - Vomiting [Recovered/Resolved]
  - Fatigue [Recovered/Resolved]
  - Slow response to stimuli [Recovered/Resolved]
  - Infection [Unknown]
  - Hypoglycaemia [Recovered/Resolved]
